FAERS Safety Report 7879363-0 (Version None)
Quarter: 2011Q4

REPORT INFORMATION
  Report Type: 
  Country: None (occurrence: None)
  Receive Date: 20111101
  Receipt Date: 20111021
  Transmission Date: 20120403
  Serious: Yes (Hospitalization)
  Sender: FDA-Public Use
  Company Number: US-BAYER-2011-030141

PATIENT
  Age: 23 Year
  Sex: Female
  Weight: 77.098 kg

DRUGS (5)
  1. SEASONIQUE [Concomitant]
  2. YAZ [Suspect]
     Indication: ACNE
     Dosage: UNK
     Dates: start: 20070101, end: 20080101
  3. YAZ [Suspect]
     Indication: CONTRACEPTION
  4. NEXIUM [Concomitant]
  5. CIPROFLOXACIN [Concomitant]

REACTIONS (5)
  - CHOLELITHIASIS [None]
  - INJURY [None]
  - CHOLECYSTITIS CHRONIC [None]
  - PAIN [None]
  - GALLBLADDER DISORDER [None]
